FAERS Safety Report 16232739 (Version 1)
Quarter: 2019Q2

REPORT INFORMATION
  Report Type: Spontaneous
  Country: US (occurrence: US)
  Receive Date: 20190423
  Receipt Date: 20190423
  Transmission Date: 20190711
  Serious: No
  Sender: FDA-Public Use
  Company Number: None

PATIENT
  Age: 34 Year
  Sex: Female
  Weight: 56.25 kg

DRUGS (2)
  1. BIRTH CONTROL [Concomitant]
     Active Substance: UNSPECIFIED INGREDIENT
  2. EMGALITY [Suspect]
     Active Substance: GALCANEZUMAB-GNLM
     Indication: MIGRAINE
     Dosage: ?          QUANTITY:1 INJECTION(S);?

REACTIONS (2)
  - Injection site warmth [None]
  - Injection site swelling [None]

NARRATIVE: CASE EVENT DATE: 20190423
